FAERS Safety Report 5573233-9 (Version None)
Quarter: 2007Q4

REPORT INFORMATION
  Report Type: 
  Country: None (occurrence: None)
  Receive Date: 20071220
  Receipt Date: 20071210
  Transmission Date: 20080405
  Serious: Yes (Hospitalization)
  Sender: FDA-Public Use
  Company Number: DSA_31049_2007

PATIENT
  Age: 85 Year
  Sex: Female

DRUGS (6)
  1. ENALAPRIL MALEATE [Suspect]
     Indication: HYPERTENSION
     Dosage: (5 MG QD ORAL)
     Route: 048
     Dates: start: 20070715, end: 20070726
  2. CLONAZEPAM [Suspect]
     Indication: ANXIETY
     Dosage: (DF ORAL)
     Route: 048
     Dates: start: 20070716, end: 20070728
  3. CLONAZEPAM [Suspect]
     Indication: HALLUCINATION
     Dosage: (DF ORAL)
     Route: 048
     Dates: start: 20070716, end: 20070728
  4. BROMAZEPAM (BROMAZEPAM) [Suspect]
     Indication: ANXIETY
     Dosage: (4.5 MG QD ORAL)
     Route: 048
     Dates: start: 20070723, end: 20070725
  5. RISPERIDONE [Suspect]
     Indication: HALLUCINATION
     Dosage: (DF ORAL)
     Route: 048
     Dates: start: 20070724, end: 20070727
  6. AMISULPRIDE (AMISULPRIDE) [Suspect]
     Indication: HALLUCINATION
     Dosage: (100 MG QD ORAL)
     Route: 048
     Dates: start: 20070725, end: 20070727

REACTIONS (2)
  - FALL [None]
  - FEMUR FRACTURE [None]
